FAERS Safety Report 5848001-0 (Version None)
Quarter: 2008Q3

REPORT INFORMATION
  Report Type: 
  Country: None (occurrence: None)
  Receive Date: 20080814
  Receipt Date: 20080729
  Transmission Date: 20090109
  Serious: Yes (Life-Threatening)
  Sender: FDA-Public Use
  Company Number: 2007S1010749

PATIENT
  Age: 37 Year
  Sex: Female

DRUGS (8)
  1. SERTRALINE [Suspect]
     Indication: DEPRESSION
     Dosage: 50 MG;
     Dates: start: 20061106, end: 20061206
  2. BECLOMETHASONE DIPROPIONATE [Concomitant]
  3. CERAZETTE (CEFALORIDINE) [Concomitant]
  4. INFLUENZA VIRUS (INFLUENZA VACCINE) [Concomitant]
  5. KETOVITE /00479801/ (KETOVITE /00479801/) [Concomitant]
  6. LACTULOSE [Concomitant]
  7. LACTULOSE [Concomitant]
  8. SALBUTAMOL (SALBUTAMOL) [Concomitant]

REACTIONS (4)
  - ANTIPHOSPHOLIPID SYNDROME [None]
  - DRUG EXPOSURE DURING PREGNANCY [None]
  - STILLBIRTH [None]
  - VAGINAL HAEMORRHAGE [None]
